FAERS Safety Report 21742247 (Version 1)
Quarter: 2022Q4

REPORT INFORMATION
  Report Type: Spontaneous
  Country: JP (occurrence: JP)
  Receive Date: 20221216
  Receipt Date: 20221216
  Transmission Date: 20230113
  Serious: Yes (Hospitalization)
  Sender: FDA-Public Use
  Company Number: JP-BIOGEN-2022BI01175017

PATIENT
  Sex: Female

DRUGS (5)
  1. TECFIDERA [Suspect]
     Active Substance: DIMETHYL FUMARATE
     Indication: Multiple sclerosis
     Dosage: IN YEAR X, TECFIDERA THERAPY WAS DISCONTINUED DUE TO PREGNANCY.
     Route: 050
  2. TECFIDERA [Suspect]
     Active Substance: DIMETHYL FUMARATE
     Dosage: THE PATIENT BREASTFED FOR 1 WEEK AND AFTER WEANING,  TECFIDERA THERAPY WAS RESUMED.
     Route: 050
  3. BUPIVACAINE HYDROCHLORIDE [Concomitant]
     Active Substance: BUPIVACAINE HYDROCHLORIDE
     Indication: Anaesthesia procedure
     Route: 050
  4. FENTANYL [Concomitant]
     Active Substance: FENTANYL
     Indication: Anaesthesia procedure
     Route: 050
  5. MORPHINE HYDROCHLORIDE [Concomitant]
     Active Substance: MORPHINE HYDROCHLORIDE
     Indication: Anaesthesia procedure
     Route: 050

REACTIONS (3)
  - Placenta praevia [Unknown]
  - Caesarean section [Unknown]
  - Maternal exposure during pregnancy [Unknown]
